FAERS Safety Report 17624537 (Version 1)
Quarter: 2020Q2

REPORT INFORMATION
  Report Type: Report from Study
  Country: None (occurrence: US)
  Receive Date: 20200403
  Receipt Date: 20200403
  Transmission Date: 20200713
  Serious: No
  Sender: FDA-Public Use
  Company Number: US-BIOVITRUM-2019US4672

PATIENT
  Sex: Female

DRUGS (2)
  1. LEXAPRO [Concomitant]
     Active Substance: ESCITALOPRAM OXALATE
  2. ORFADIN [Suspect]
     Active Substance: NITISINONE
     Indication: AMINO ACID METABOLISM DISORDER
     Route: 048
     Dates: start: 20190628

REACTIONS (10)
  - Vaginal odour [Unknown]
  - Lacrimation increased [Unknown]
  - Eye irritation [Unknown]
  - Corneal defect [Unknown]
  - Eye pain [Unknown]
  - Vaginal discharge [Unknown]
  - Visual impairment [Unknown]
  - Off label use [Unknown]
  - Corneal abrasion [Unknown]
  - Amino acid level increased [Unknown]
